FAERS Safety Report 8806906 (Version 2)
Quarter: 2014Q3

REPORT INFORMATION
  Report Type: Report from Study
  Country: US (occurrence: US)
  Receive Date: 20120925
  Receipt Date: 20140805
  Transmission Date: 20150326
  Serious: Yes (Death)
  Sender: FDA-Public Use
  Company Number: US-ROCHE-1091196

PATIENT
  Age: 63 Year
  Sex: Male
  Weight: 86.67 kg

DRUGS (2)
  1. AVASTIN [Suspect]
     Active Substance: BEVACIZUMAB
     Indication: METASTATIC NEOPLASM
  2. AVASTIN [Suspect]
     Active Substance: BEVACIZUMAB
     Indication: LUNG NEOPLASM MALIGNANT
     Dosage: 15MG/KG
     Route: 042
     Dates: start: 20080911, end: 20090119

REACTIONS (4)
  - Fatigue [Unknown]
  - White blood cell count increased [Unknown]
  - Neuropathy peripheral [Unknown]
  - Lung neoplasm malignant [Fatal]

NARRATIVE: CASE EVENT DATE: 20090224
